FAERS Safety Report 8646263 (Version 2)
Quarter: 2013Q1

REPORT INFORMATION
  Report Type: Spontaneous
  Country: DK (occurrence: None)
  Receive Date: 20120620
  Receipt Date: 20130104
  Transmission Date: 20140127
  Serious: Yes (Hospitalization)
  Sender: FDA-Public Use
  Company Number: 2012MA007373

PATIENT
  Age: 72 Year
  Sex: Female

DRUGS (9)
  1. NAPROXEN DELAYED-RELEASE [Suspect]
     Route: 048
     Dates: start: 20111221, end: 20120520
  2. ALBUTEROL SULFATE [Concomitant]
  3. OMEPRAZOLE [Concomitant]
  4. BENDROFLUMETHIAZIDE [Concomitant]
  5. LACTULOSE [Concomitant]
  6. QUININE SULFATE [Concomitant]
  7. RAMIPRIL [Concomitant]
  8. SENNA [Concomitant]
  9. FOSTAIR [Concomitant]

REACTIONS (3)
  - Haematemesis [None]
  - Melaena [None]
  - Duodenal ulcer [None]
